FAERS Safety Report 9764637 (Version 3)
Quarter: 2013Q4

REPORT INFORMATION
  Report Type: Report from Study
  Country: US (occurrence: US)
  Receive Date: 20131217
  Receipt Date: 20131230
  Transmission Date: 20140711
  Serious: Yes (Hospitalization, Other)
  Sender: FDA-Public Use
  Company Number: US-ROCHE-1297275

PATIENT
  Age: 68 Year
  Sex: Female
  Weight: 66.7 kg

DRUGS (4)
  1. BEVACIZUMAB [Suspect]
     Indication: OVARIAN EPITHELIAL CANCER
     Dosage: OVER 30-90 MINS ON DAY 1, LAST DOSE PRIOR TO THE EVENT: 13/SEP/2013
     Route: 042
     Dates: start: 20130711
  2. CARBOPLATIN [Suspect]
     Indication: OVARIAN EPITHELIAL CANCER
     Dosage: 6 AUC OVER 30 MINS ON DAY 1, LAST DOSE PRIOR TO SAE: 13/SEP/2013
     Route: 042
     Dates: start: 20130711
  3. PACLITAXEL [Suspect]
     Indication: OVARIAN EPITHELIAL CANCER
     Dosage: OVER 3 HOURS ON DAY 1, LAST DOSE PRIOR TO SAE: 13/SEP/2013,
     Route: 042
     Dates: start: 20130711
  4. ABT-888 [Suspect]
     Indication: OVARIAN EPITHELIAL CANCER
     Dosage: LAST DOSE PRIOR TO SAE: 30/SEP/2013
     Route: 048
     Dates: start: 20130711

REACTIONS (2)
  - Small intestinal obstruction [Recovering/Resolving]
  - Hypertension [Not Recovered/Not Resolved]
